FAERS Safety Report 6994632-4 (Version None)
Quarter: 2010Q3

REPORT INFORMATION
  Report Type: 
  Country: None (occurrence: None)
  Receive Date: 20100915
  Receipt Date: 20100915
  Transmission Date: 20110219
  Serious: Yes (Life-Threatening, Hospitalization)
  Sender: FDA-Public Use
  Company Number: None

PATIENT
  Age: 46 Year
  Sex: Female
  Weight: 47.6277 kg

DRUGS (5)
  1. PAXIL [Suspect]
     Indication: BORDERLINE PERSONALITY DISORDER
     Dosage: AS DIRECTED
     Dates: start: 19960101, end: 19980101
  2. PAXIL [Suspect]
     Indication: DEPRESSION
     Dosage: AS DIRECTED
     Dates: start: 19960101, end: 19980101
  3. PAXIL [Suspect]
     Indication: HISTRIONIC PERSONALITY DISORDER
     Dosage: AS DIRECTED
     Dates: start: 19960101, end: 19980101
  4. PAXIL [Suspect]
     Indication: KLEPTOMANIA
     Dosage: JAIL FOR YEAR, NO MEDS
     Dates: start: 20010102, end: 20020101
  5. PAXIL [Suspect]
     Indication: MAJOR DEPRESSION
     Dosage: JAIL FOR YEAR, NO MEDS
     Dates: start: 20010102, end: 20020101

REACTIONS (15)
  - AGGRESSION [None]
  - BORDERLINE PERSONALITY DISORDER [None]
  - CONDITION AGGRAVATED [None]
  - CRYING [None]
  - DEATH OF RELATIVE [None]
  - DISSOCIATIVE AMNESIA [None]
  - ECONOMIC PROBLEM [None]
  - FEELING ABNORMAL [None]
  - HISTRIONIC PERSONALITY DISORDER [None]
  - IMPRISONMENT [None]
  - INSOMNIA [None]
  - KLEPTOMANIA [None]
  - MAJOR DEPRESSION [None]
  - PNEUMONIA [None]
  - SUICIDAL IDEATION [None]
